FAERS Safety Report 10537826 (Version 1)
Quarter: 2014Q4

REPORT INFORMATION
  Report Type: Spontaneous
  Country: AR (occurrence: AR)
  Receive Date: 20141023
  Receipt Date: 20141023
  Transmission Date: 20150529
  Serious: Yes (Hospitalization, Other)
  Sender: FDA-Public Use
  Company Number: PHHY2014AR138617

PATIENT
  Age: 79 Year
  Sex: Female

DRUGS (1)
  1. DIOVAN [Suspect]
     Active Substance: VALSARTAN
     Indication: HYPERTENSION
     Dosage: 1 DF (320 MG), QD
     Route: 048
     Dates: end: 20141020

REACTIONS (2)
  - VIIth nerve paralysis [Recovered/Resolved]
  - Aortic calcification [Unknown]

NARRATIVE: CASE EVENT DATE: 20131002
